FAERS Safety Report 19978803 (Version 1)
Quarter: 2021Q4

REPORT INFORMATION
  Report Type: Spontaneous
  Country: US (occurrence: US)
  Receive Date: 20211021
  Receipt Date: 20211021
  Transmission Date: 20220303
  Serious: Yes (Other)
  Sender: FDA-Public Use
  Company Number: None

PATIENT
  Age: 36 Year
  Sex: Female
  Weight: 65.25 kg

DRUGS (5)
  1. BUPROPION [Suspect]
     Active Substance: BUPROPION
     Indication: Depression
     Dosage: ?          QUANTITY:90 TABLET(S);
     Route: 048
     Dates: start: 20211001, end: 20211020
  2. TEMAZEPAM [Concomitant]
     Active Substance: TEMAZEPAM
  3. VITAMINS [Concomitant]
     Active Substance: VITAMINS
  4. BIOTIN [Concomitant]
     Active Substance: BIOTIN
  5. VITAMIN D3 [Concomitant]
     Active Substance: CHOLECALCIFEROL

REACTIONS (4)
  - Hypertension [None]
  - Chest pain [None]
  - Headache [None]
  - Product odour abnormal [None]
